FAERS Safety Report 9395509 (Version 1)
Quarter: 2013Q3

REPORT INFORMATION
  Report Type: Spontaneous
  Country: CL (occurrence: CL)
  Receive Date: 20130711
  Receipt Date: 20130711
  Transmission Date: 20140515
  Serious: Yes (Other)
  Sender: FDA-Public Use
  Company Number: CL-ASTELLAS-2013US007201

PATIENT
  Age: 49 Year
  Sex: Male

DRUGS (2)
  1. AMBISOME [Suspect]
     Indication: ZYGOMYCOSIS
     Dosage: 50 MG, UNKNOWN/D
     Route: 042
     Dates: start: 20130619, end: 20130620
  2. AMBISOME [Suspect]
     Dosage: UNK
     Route: 065
     Dates: start: 20130620

REACTIONS (5)
  - Presyncope [Unknown]
  - Hypotension [Unknown]
  - Wrong technique in drug usage process [Unknown]
  - Flushing [Unknown]
  - Abnormal faeces [Unknown]
